FAERS Safety Report 4446767-8 (Version None)
Quarter: 2004Q3

REPORT INFORMATION
  Report Type: 
  Country: None (occurrence: None)
  Receive Date: 20040910
  Receipt Date: 20040830
  Transmission Date: 20050211
  Serious: Yes (Hospitalization)
  Sender: FDA-Public Use
  Company Number: 208748

PATIENT
  Age: 37 Year
  Sex: Female
  Weight: 63.5 kg

DRUGS (6)
  1. XOLAIR [Suspect]
     Indication: ASTHMA
     Dosage: 375 MG,
     Dates: start: 20040819
  2. ZYRTEC [Concomitant]
  3. ADVAIR DISKUS [Concomitant]
  4. NEXIUM (ESOMEPTRAZOLE MAGNESIUM) [Concomitant]
  5. PROVENTIL (ALBUTEROL, ALBUTEROL SULFATE) [Concomitant]
  6. TOPAMAX [Concomitant]

REACTIONS (9)
  - ABDOMINAL PAIN UPPER [None]
  - APHAGIA [None]
  - DYSPEPSIA [None]
  - EOSINOPHILIA [None]
  - HEADACHE [None]
  - MUSCLE RIGIDITY [None]
  - MUSCLE SPASMS [None]
  - WEIGHT DECREASED [None]
  - WHITE BLOOD CELL COUNT INCREASED [None]
